FAERS Safety Report 9474557 (Version 1)
Quarter: 2013Q3

REPORT INFORMATION
  Report Type: Spontaneous
  Country: US (occurrence: US)
  Receive Date: 20130823
  Receipt Date: 20130823
  Transmission Date: 20140515
  Serious: No
  Sender: FDA-Public Use
  Company Number: US-009507513-1308USA010643

PATIENT
  Sex: Female

DRUGS (4)
  1. NUVARING [Suspect]
     Indication: CONTRACEPTION
     Dosage: UNK
     Dates: start: 2006, end: 200805
  2. TOPAMAX [Suspect]
     Indication: MIGRAINE
     Dosage: UNK
     Dates: end: 200608
  3. CORTICOSTEROIDS (UNSPECIFIED) [Concomitant]
     Indication: EAR INFECTION
  4. VITAMINS (UNSPECIFIED) [Concomitant]

REACTIONS (1)
  - Maternal exposure before pregnancy [Unknown]
